FAERS Safety Report 24272262 (Version 1)
Quarter: 2024Q3

REPORT INFORMATION
  Report Type: Spontaneous
  Country: US (occurrence: US)
  Receive Date: 20240902
  Receipt Date: 20240902
  Transmission Date: 20241017
  Serious: No
  Sender: APOTEX
  Company Number: US-APOTEX-2024AP009259

PATIENT
  Age: 78 Year
  Sex: Female

DRUGS (2)
  1. IPRATROPIUM BROMIDE [Suspect]
     Active Substance: IPRATROPIUM BROMIDE\IPRATROPIUM BROMIDE ANHYDROUS
     Indication: Rhinorrhoea
     Dosage: 1-2 SPRAYS, QID
     Route: 045
     Dates: start: 20240612, end: 20240810
  2. IPRATROPIUM BROMIDE [Suspect]
     Active Substance: IPRATROPIUM BROMIDE\IPRATROPIUM BROMIDE ANHYDROUS
     Indication: Sinus operation

REACTIONS (4)
  - Rash papular [Recovering/Resolving]
  - Pruritus [Recovering/Resolving]
  - Arthropod bite [Recovering/Resolving]
  - Dry mouth [Unknown]

NARRATIVE: CASE EVENT DATE: 20240712
